FAERS Safety Report 21576552 (Version 1)
Quarter: 2022Q4

REPORT INFORMATION
  Report Type: Spontaneous
  Country: US (occurrence: US)
  Receive Date: 20221110
  Receipt Date: 20221110
  Transmission Date: 20230112
  Serious: No
  Sender: FDA-Public Use
  Company Number: US-BIOGEN-2022BI01168102

PATIENT
  Sex: Male

DRUGS (5)
  1. VUMERITY [Suspect]
     Active Substance: DIROXIMEL FUMARATE
     Indication: Multiple sclerosis
     Route: 050
  2. ZETIA [Concomitant]
     Active Substance: EZETIMIBE
     Route: 050
  3. ALLOPURINOL [Concomitant]
     Active Substance: ALLOPURINOL
     Route: 050
  4. METOPROLOL SUCCINATE [Concomitant]
     Active Substance: METOPROLOL SUCCINATE
     Route: 050
  5. NEXLETOL [Concomitant]
     Active Substance: BEMPEDOIC ACID
     Route: 050

REACTIONS (1)
  - Blood creatinine increased [Unknown]
